FAERS Safety Report 9811862 (Version 2)
Quarter: 2015Q1

REPORT INFORMATION
  Report Type: Spontaneous
  Country: US (occurrence: US)
  Receive Date: 20140110
  Receipt Date: 20150217
  Transmission Date: 20150721
  Serious: Yes (Other)
  Sender: FDA-Public Use
  Company Number: US-SANOFI-AVENTIS-2013SA068472

PATIENT
  Age: 71 Year

DRUGS (4)
  1. PLAVIX [Suspect]
     Active Substance: CLOPIDOGREL BISULFATE
     Indication: STENT PLACEMENT
     Route: 048
     Dates: start: 20050505, end: 20110728
  2. PLAVIX [Suspect]
     Active Substance: CLOPIDOGREL BISULFATE
     Indication: PERIPHERAL ARTERIAL OCCLUSIVE DISEASE
     Route: 048
     Dates: start: 20050505, end: 20110728
  3. ASPIRIN. [Concomitant]
     Active Substance: ASPIRIN
     Dates: start: 20050505, end: 20110728
  4. COUMADIN [Concomitant]
     Active Substance: WARFARIN SODIUM
     Dates: start: 1997

REACTIONS (3)
  - Oesophageal injury [Unknown]
  - Gastrointestinal haemorrhage [Unknown]
  - Arterial injury [Unknown]

NARRATIVE: CASE EVENT DATE: 20110822
